FAERS Safety Report 23080411 (Version 1)
Quarter: 2023Q4

REPORT INFORMATION
  Report Type: Report from Study
  Country: DK (occurrence: DK)
  Receive Date: 20231018
  Receipt Date: 20231018
  Transmission Date: 20240109
  Serious: Yes (Other)
  Sender: FDA-Public Use
  Company Number: None

PATIENT
  Sex: Female

DRUGS (1)
  1. LEVETIRACETAM [Suspect]
     Active Substance: LEVETIRACETAM
     Indication: Epilepsy
     Dosage: 1000 MILLIGRAM, QD (1000 MG DAILY DOSE)

REACTIONS (3)
  - Pregnancy [Unknown]
  - Maternal exposure during pregnancy [Unknown]
  - Abortion spontaneous [Unknown]
